FAERS Safety Report 25723734 (Version 1)
Quarter: 2025Q3

REPORT INFORMATION
  Report Type: Spontaneous
  Country: US (occurrence: US)
  Receive Date: 20250825
  Receipt Date: 20250825
  Transmission Date: 20251020
  Serious: Yes (Other)
  Sender: NOVARTIS
  Company Number: US-002147023-NVSC2025US132124

PATIENT
  Age: 4 Year
  Sex: Female

DRUGS (7)
  1. TRAMETINIB [Suspect]
     Active Substance: TRAMETINIB
     Indication: Pleuropulmonary blastoma
     Route: 065
  2. ACTINOMYCIN D [Concomitant]
     Active Substance: DACTINOMYCIN
     Indication: Pleuropulmonary blastoma
     Route: 065
  3. DOXORUBICIN [Concomitant]
     Active Substance: DOXORUBICIN
     Indication: Pleuropulmonary blastoma
     Route: 065
  4. IFOSFAMIDE [Concomitant]
     Active Substance: IFOSFAMIDE
     Indication: Pleuropulmonary blastoma
     Route: 065
  5. VINCRISTINE [Concomitant]
     Active Substance: VINCRISTINE
     Indication: Pleuropulmonary blastoma
     Route: 065
  6. TEMOZOLOMIDE [Concomitant]
     Active Substance: TEMOZOLOMIDE
     Indication: Pleuropulmonary blastoma
     Route: 065
  7. IRINOTECAN [Concomitant]
     Active Substance: IRINOTECAN
     Indication: Pleuropulmonary blastoma
     Route: 048

REACTIONS (4)
  - Pleuropulmonary blastoma [Unknown]
  - Metastases to central nervous system [Unknown]
  - Malignant neoplasm progression [Unknown]
  - Off label use [Unknown]
